FAERS Safety Report 5620969-7 (Version None)
Quarter: 2008Q1

REPORT INFORMATION
  Report Type: 
  Country: None (occurrence: None)
  Receive Date: 20080208
  Receipt Date: 20080129
  Transmission Date: 20080703
  Serious: Yes (Hospitalization, Other)
  Sender: FDA-Public Use
  Company Number: US-PFIZER INC-2008009569

PATIENT
  Sex: Female
  Weight: 90.9 kg

DRUGS (10)
  1. CHANTIX [Suspect]
     Indication: SMOKING CESSATION THERAPY
  2. ALBUTEROL [Concomitant]
  3. COMBIVENT [Concomitant]
  4. ADVAIR DISKUS 100/50 [Concomitant]
  5. SPIRIVA [Concomitant]
  6. MONTELUKAST SODIUM [Concomitant]
  7. PULMICORT [Concomitant]
  8. DUONEB [Concomitant]
  9. INSULIN [Concomitant]
  10. OXYGEN [Concomitant]

REACTIONS (4)
  - AMNESIA [None]
  - HYPOVENTILATION [None]
  - LUNG DISORDER [None]
  - RESPIRATORY DISORDER [None]
